FAERS Safety Report 17659343 (Version 1)
Quarter: 2020Q2

REPORT INFORMATION
  Report Type: Spontaneous
  Country: US (occurrence: US)
  Receive Date: 20200413
  Receipt Date: 20200413
  Transmission Date: 20200713
  Serious: Yes (Hospitalization, Other)
  Sender: FDA-Public Use
  Company Number: US-EMCURE PHARMACEUTICALS LTD-2020-EPL-000398

PATIENT
  Age: 31 Year
  Sex: Female
  Weight: 59 kg

DRUGS (19)
  1. EQUINE ANTI-THYMOCYTE GLOBULIN [Concomitant]
     Dosage: UNK
  2. RIFAMPIN. [Suspect]
     Active Substance: RIFAMPIN
     Indication: ANTIBIOTIC PROPHYLAXIS
     Dosage: 450 MILLIGRAM, EVERY 12 HR
     Route: 042
  3. SIROLIMUS. [Interacting]
     Active Substance: SIROLIMUS
     Indication: PROPHYLAXIS AGAINST GRAFT VERSUS HOST DISEASE
     Dosage: THERAPEUTIC TROUGH GOAL 3?12 MCG/L
  4. SIROLIMUS. [Interacting]
     Active Substance: SIROLIMUS
     Dosage: TAPERED, TROUGH 6.6 MCG/L UPON TAPER INITIATION
  5. SIROLIMUS. [Interacting]
     Active Substance: SIROLIMUS
     Dosage: ON ADMISSION, SIROLIMUS TROUGH 3.5 MCG/L
  6. CYCLOPHOSPHAMIDE. [Concomitant]
     Active Substance: CYCLOPHOSPHAMIDE
  7. OFLOXACIN. [Concomitant]
     Active Substance: OFLOXACIN
     Indication: STAPHYLOCOCCAL INFECTION
     Dosage: OTIC SOLUTION
  8. LINEZOLID. [Concomitant]
     Active Substance: LINEZOLID
     Indication: ANTIBIOTIC PROPHYLAXIS
     Dosage: 600 MILLIGRAM, BID
     Route: 042
  9. MYCOPHENOLATE [Concomitant]
     Active Substance: MYCOPHENOLIC ACID
     Indication: PROPHYLAXIS AGAINST GRAFT VERSUS HOST DISEASE
  10. CEFEPIME [Concomitant]
     Active Substance: CEFEPIME HYDROCHLORIDE
     Indication: STAPHYLOCOCCAL INFECTION
  11. SIROLIMUS. [Interacting]
     Active Substance: SIROLIMUS
     Dosage: RESTARTED, TROUGHS 7 MCG/L
  12. VORICONAZOLE. [Interacting]
     Active Substance: VORICONAZOLE
     Indication: ANTIFUNGAL PROPHYLAXIS
     Dosage: 200 MILLIGRAM, BID
     Route: 048
  13. SIROLIMUS. [Interacting]
     Active Substance: SIROLIMUS
     Dosage: 12 MG SIROLIMUS LOADING DOSE
  14. FLUDARABINE [Concomitant]
     Active Substance: FLUDARABINE PHOSPHATE
  15. SIROLIMUS. [Interacting]
     Active Substance: SIROLIMUS
     Dosage: RESTARTED, TROUGHS 25MCG/L
  16. SIROLIMUS. [Interacting]
     Active Substance: SIROLIMUS
     Dosage: DOSES OF 16?18 MG DAILY
  17. EQUINE ANTI-THYMOCYTE GLOBULIN [Concomitant]
     Dosage: RECEIVED 10 DOSES
  18. METHYLPREDNISOLONE. [Concomitant]
     Active Substance: METHYLPREDNISOLONE
  19. VANCOMYCIN [Concomitant]
     Active Substance: VANCOMYCIN
     Indication: STAPHYLOCOCCAL INFECTION

REACTIONS (2)
  - Drug interaction [Unknown]
  - Drug level below therapeutic [Recovered/Resolved]
